FAERS Safety Report 5187902-6 (Version None)
Quarter: 2006Q4

REPORT INFORMATION
  Report Type: 
  Country: None (occurrence: None)
  Receive Date: 20061221
  Receipt Date: 20061214
  Transmission Date: 20070319
  Serious: Yes (Hospitalization)
  Sender: FDA-Public Use
  Company Number: 2006CG02041

PATIENT
  Age: 48 Year
  Sex: Male

DRUGS (1)
  1. XYLOCAINE [Suspect]
     Indication: LOCAL ANAESTHESIA
     Route: 058
     Dates: start: 20061213, end: 20061213

REACTIONS (6)
  - BLOOD PRESSURE INCREASED [None]
  - DIPLOPIA [None]
  - DYSPHAGIA [None]
  - SOMNOLENCE [None]
  - SPEECH DISORDER [None]
  - VISION BLURRED [None]
